FAERS Safety Report 6721458-9 (Version None)
Quarter: 2010Q2

REPORT INFORMATION
  Report Type: 
  Country: None (occurrence: None)
  Receive Date: 20100512
  Receipt Date: 20100503
  Transmission Date: 20101027
  Serious: Yes (Death)
  Sender: FDA-Public Use
  Company Number: US-JNJFOC-20100204403

PATIENT
  Sex: Female
  Weight: 124.74 kg

DRUGS (20)
  1. SIMPONI [Suspect]
     Indication: PSORIATIC ARTHROPATHY
     Route: 058
  2. SIMPONI [Suspect]
     Indication: PSORIASIS
     Route: 058
  3. QUETIAPINE [Concomitant]
     Route: 048
  4. HYDROXYZINE [Concomitant]
     Route: 048
  5. NEXIUM [Concomitant]
     Route: 048
  6. SORIATANE [Concomitant]
     Route: 048
  7. KLOR-CON [Concomitant]
     Route: 048
  8. GLIMEPIRIDE [Concomitant]
     Route: 048
  9. CARVEDILOL [Concomitant]
     Route: 048
  10. PROMETHAZINE [Concomitant]
     Route: 048
  11. CELEXA [Concomitant]
     Route: 048
  12. ACTOS [Concomitant]
     Route: 048
  13. ROXICODONE [Concomitant]
     Route: 048
  14. OXYCODONE [Concomitant]
     Route: 048
  15. INSULIN [Concomitant]
     Route: 048
  16. OXYCODONE HCL AND ACETAMINOPHEN [Concomitant]
     Indication: PAIN
     Route: 048
  17. COUMADIN [Concomitant]
     Route: 048
  18. TRIAMCINOLONE [Concomitant]
     Route: 061
  19. TRIAMCINOLONE [Concomitant]
     Route: 061
  20. BETAMETHASONE [Concomitant]

REACTIONS (2)
  - MYOCARDIAL INFARCTION [None]
  - THROMBOSIS [None]
